FAERS Safety Report 9910254 (Version 2)
Quarter: 2014Q1

REPORT INFORMATION
  Report Type: Report from Study
  Country: US (occurrence: US)
  Receive Date: 20140219
  Receipt Date: 20140219
  Transmission Date: 20141002
  Serious: Yes (Other)
  Sender: FDA-Public Use
  Company Number: US-ABBVIE-13P-163-1063216-00

PATIENT
  Age: 58 Year
  Sex: Female
  Weight: 90.8 kg

DRUGS (8)
  1. HUMIRA [Suspect]
     Indication: SPONDYLOARTHROPATHY
     Dates: start: 201206, end: 201309
  2. PREDNISONE [Suspect]
     Indication: SPONDYLOARTHROPATHY
  3. OMEPRAZOLE [Concomitant]
     Indication: GASTROOESOPHAGEAL REFLUX DISEASE
  4. ACETAMINOPHEN [Concomitant]
     Indication: PAIN
  5. VITAMIN D-3 [Concomitant]
     Indication: VITAMIN SUPPLEMENTATION
  6. TRAMADOL [Concomitant]
     Indication: PAIN
  7. FOLIC ACID [Concomitant]
     Indication: VITAMIN SUPPLEMENTATION
  8. METHOTREXATE [Concomitant]
     Indication: SPONDYLOARTHROPATHY

REACTIONS (14)
  - Neck pain [Not Recovered/Not Resolved]
  - Spinal cord injury [Not Recovered/Not Resolved]
  - Visual impairment [Not Recovered/Not Resolved]
  - Joint injury [Not Recovered/Not Resolved]
  - Road traffic accident [Recovered/Resolved]
  - Sinusitis [Recovered/Resolved]
  - Rash [Unknown]
  - Tooth infection [Recovered/Resolved]
  - Urticaria [Recovered/Resolved]
  - Sinusitis [Recovered/Resolved]
  - Sinusitis [Recovered/Resolved]
  - Chronic obstructive pulmonary disease [Recovered/Resolved]
  - Influenza [Recovered/Resolved]
  - Off label use [Recovered/Resolved]
